FAERS Safety Report 11311267 (Version 1)
Quarter: 2015Q3

REPORT INFORMATION
  Report Type: Spontaneous
  Country: BR (occurrence: None)
  Receive Date: 20150723
  Receipt Date: 20150723
  Transmission Date: 20151125
  Serious: Yes (Other)
  Sender: FDA-Public Use
  Company Number: INT_00843_2015

PATIENT
  Age: 48 Year
  Sex: Male

DRUGS (7)
  1. CISPLATIN (CISPLATIN) (HQ SPECIALTY) [Suspect]
     Active Substance: CISPLATIN
     Indication: METASTASES TO LUNG
     Dosage: (80 MG/M2, 123 MG IN 1 H, EVERY 21 DAYS)
     Dates: start: 201301, end: 2013
  2. CARBOPLATIN. [Concomitant]
     Active Substance: CARBOPLATIN
  3. LEVOTHYROXINE. [Concomitant]
     Active Substance: LEVOTHYROXINE
  4. ONDANSETRON [Concomitant]
     Active Substance: ONDANSETRON
  5. DEXAMETHASONE. [Concomitant]
     Active Substance: DEXAMETHASONE
  6. CISPLATIN (CISPLATIN) (HQ SPECIALTY) [Suspect]
     Active Substance: CISPLATIN
     Indication: LARYNGEAL CANCER
     Dosage: (80 MG/M2, 123 MG IN 1 H, EVERY 21 DAYS)
     Dates: start: 201301, end: 2013
  7. DIPYRONE [Concomitant]
     Active Substance: DIPYRONE

REACTIONS (1)
  - Type I hypersensitivity [None]

NARRATIVE: CASE EVENT DATE: 2013
